FAERS Safety Report 8966504 (Version 2)
Quarter: 2013Q1

REPORT INFORMATION
  Report Type: Spontaneous
  Country: GB (occurrence: None)
  Receive Date: 20121206
  Receipt Date: 20121227
  Transmission Date: 20140127
  Serious: Yes (Life-Threatening, Hospitalization)
  Sender: FDA-Public Use
  Company Number: AUR-APL-2012-05114

PATIENT
  Age: 38 Year
  Sex: Male
  Weight: 85 kg

DRUGS (2)
  1. RISPERIDONE (RISPERIDONE) [Suspect]
     Indication: HALLUCINATION, AUDITORY
     Route: 048
     Dates: start: 20080928, end: 20120131
  2. MIRTAZAPINE (MIRTAZAPINE) [Concomitant]

REACTIONS (12)
  - Constipation [None]
  - Malaise [None]
  - Dysphagia [None]
  - Rash [None]
  - Penile infection [None]
  - Hiatus hernia [None]
  - Cardiac disorder [None]
  - Withdrawal syndrome [None]
  - Loss of consciousness [None]
  - Gastrointestinal disorder [None]
  - Depression [None]
  - Chest pain [None]
